FAERS Safety Report 10044651 (Version 2)
Quarter: 2014Q2

REPORT INFORMATION
  Report Type: Spontaneous
  Country: US (occurrence: US)
  Receive Date: 20140328
  Receipt Date: 20140430
  Transmission Date: 20141212
  Serious: No
  Sender: FDA-Public Use
  Company Number: US-B.I. PHARMACEUTICALS,INC./RIDGEFIELD-2014-BI-12737BP

PATIENT
  Sex: Female

DRUGS (8)
  1. COMBIVENT [Suspect]
     Indication: ASTHMA
     Dosage: DOSE PER APPLICATION:18 MCG / 103
     Route: 055
     Dates: end: 2013
  2. COMBIVENT [Suspect]
     Indication: ASTHMA
     Dosage: STRENGTH: 20 MCG / 100 MCG;
     Route: 055
     Dates: start: 2013
  3. NASONEX [Concomitant]
     Indication: HYPERSENSITIVITY
     Dosage: 2 PUF
     Route: 045
  4. NASONEX [Concomitant]
     Indication: UPPER-AIRWAY COUGH SYNDROME
  5. INDAPAMIDE [Concomitant]
     Indication: HYPERTENSION
     Dosage: 12.5 MG
     Route: 048
  6. LASIX [Concomitant]
     Indication: LOCAL SWELLING
     Dosage: 10 MG
     Route: 048
  7. POTASSIUM [Concomitant]
     Indication: MUSCLE SPASMS
     Dosage: 60 MEQ
     Route: 048
  8. MAGNESIUM [Concomitant]
     Indication: MUSCLE SPASMS
     Route: 048

REACTIONS (3)
  - Dry mouth [Not Recovered/Not Resolved]
  - Off label use [Not Recovered/Not Resolved]
  - Off label use [Unknown]
